FAERS Safety Report 5758153-9 (Version None)
Quarter: 2008Q2

REPORT INFORMATION
  Report Type: 
  Country: None (occurrence: None)
  Receive Date: 20080530
  Receipt Date: 20080521
  Transmission Date: 20081010
  Serious: Yes (Hospitalization, Other)
  Sender: FDA-Public Use
  Company Number: 2008SP003186

PATIENT
  Age: 60 Year
  Sex: Female
  Weight: 68 kg

DRUGS (8)
  1. DESLORATADINE [Suspect]
     Indication: HYPERSENSITIVITY
     Dosage: 5 MG; QD; PO, 5 MG; QD; PO
     Route: 048
     Dates: start: 20071101
  2. DESLORATADINE [Suspect]
     Indication: HYPERSENSITIVITY
     Dosage: 5 MG; QD; PO, 5 MG; QD; PO
     Route: 048
     Dates: start: 20080101
  3. NASONEX [Suspect]
     Indication: DRUG USE FOR UNKNOWN INDICATION
  4. AUGMENTIN '200' [Suspect]
     Indication: DRUG USE FOR UNKNOWN INDICATION
     Dosage: 4 DF; QD; PO
     Route: 048
     Dates: start: 20080101
  5. MONOZECLAR (CLARITHROMYCIN) [Suspect]
     Indication: DRUG USE FOR UNKNOWN INDICATION
     Dates: start: 20071101
  6. XYZAL [Concomitant]
  7. RHINOFLUIMUCIL [Concomitant]
  8. ACETAMINOPHEN [Concomitant]

REACTIONS (5)
  - EPILEPSY [None]
  - FALL [None]
  - FRACTURE [None]
  - JOINT DISLOCATION [None]
  - LOSS OF CONSCIOUSNESS [None]
